FAERS Safety Report 9668394 (Version 2)
Quarter: 2013Q4

REPORT INFORMATION
  Report Type: Report from Study
  Country: JP (occurrence: JP)
  Receive Date: 20131104
  Receipt Date: 20131212
  Transmission Date: 20140711
  Serious: Yes (Life-Threatening, Hospitalization, Disabling, Other)
  Sender: FDA-Public Use
  Company Number: JP-TAKEDA-2013TJP002364

PATIENT
  Age: 85 Year
  Sex: Male
  Weight: 42 kg

DRUGS (10)
  1. LANSOPRAZOLE [Suspect]
     Indication: PROPHYLAXIS AGAINST GASTROINTESTINAL ULCER
     Dosage: 15 MG, QD
     Route: 048
     Dates: start: 20120925
  2. BAYASPIRIN [Concomitant]
     Indication: THROMBOSIS PROPHYLAXIS
     Dosage: 100 MG, 1 DAYS
     Route: 048
     Dates: start: 20120925
  3. BENET [Concomitant]
     Dosage: 17.5 MG, 1/WEEK
     Route: 048
     Dates: start: 20130626
  4. MINOMACIN [Concomitant]
     Dosage: 200 MG, 1 DAYS
     Route: 048
     Dates: start: 20120717
  5. PREDNISOLONE [Concomitant]
     Dosage: 20 MG, 1 DAYS
     Route: 048
     Dates: start: 20120717
  6. GASTER D [Concomitant]
     Dosage: 20 MG, 1 DAYS
     Route: 048
     Dates: start: 20120717
  7. ACTONEL [Concomitant]
     Dosage: 2.5 MG, 1 DAYS
     Route: 048
     Dates: start: 20120717
  8. EDIROL(ELDECALCITOL) [Concomitant]
     Dosage: 0.75 ?G, 1 DAYS
     Route: 048
  9. IRBETAN [Concomitant]
     Dosage: 100 MG, 1 DAYS
     Route: 048
  10. ATELEC [Concomitant]
     Dosage: 5 MG, 1 DAYS
     Route: 048

REACTIONS (5)
  - Pyelonephritis [Recovered/Resolved]
  - Pyelonephritis [Recovered/Resolved]
  - Disseminated intravascular coagulation [Recovered/Resolved]
  - Condition aggravated [Recovered/Resolved]
  - Cardiac failure [Recovered/Resolved]
